FAERS Safety Report 7751477-5 (Version None)
Quarter: 2011Q3

REPORT INFORMATION
  Report Type: 
  Country: None (occurrence: None)
  Receive Date: 20110914
  Receipt Date: 20110902
  Transmission Date: 20111222
  Serious: Yes (Other)
  Sender: FDA-Public Use
  Company Number: PHHY2011DE72961

PATIENT
  Age: 41 Year
  Sex: Female
  Weight: 65 kg

DRUGS (5)
  1. PENTAERYTHRITOL TETRANITRATE [Concomitant]
     Indication: ENDOTHELIAL DYSFUNCTION
     Dosage: 150 MG, QD
     Route: 048
     Dates: start: 20100601
  2. RAMIPRIL [Concomitant]
     Dosage: 2,5 MG CONCENTRATION, 1 DF QD
     Route: 048
  3. SEBIVO [Suspect]
     Dosage: 1 DF, QD
     Dates: start: 20110706, end: 20110804
  4. SEBIVO [Suspect]
     Indication: PARVOVIRUS INFECTION
     Dosage: 1 DF, QD
     Dates: start: 20101015, end: 20110520
  5. METOPROLOL SUCCINATE [Concomitant]
     Dosage: 0.5 DF, QD
     Route: 048

REACTIONS (6)
  - GENERAL PHYSICAL HEALTH DETERIORATION [None]
  - THERAPEUTIC RESPONSE UNEXPECTED [None]
  - HYPOAESTHESIA [None]
  - PARVOVIRUS INFECTION [None]
  - INFLUENZA LIKE ILLNESS [None]
  - ASTHENIA [None]
